FAERS Safety Report 26055685 (Version 1)
Quarter: 2025Q4

REPORT INFORMATION
  Report Type: Spontaneous
  Country: MY (occurrence: MY)
  Receive Date: 20251117
  Receipt Date: 20251117
  Transmission Date: 20260117
  Serious: Yes (Other)
  Sender: AMGEN
  Company Number: MY-AMGEN-MYSSP2025223634

PATIENT

DRUGS (2)
  1. ADALIMUMAB [Suspect]
     Active Substance: ADALIMUMAB
     Indication: Psoriatic arthropathy
     Dosage: 40 MILLIGRAM/0.8 ML, Q2WK
     Route: 065
     Dates: start: 20250604
  2. ADALIMUMAB [Suspect]
     Active Substance: ADALIMUMAB
     Indication: Enthesopathy

REACTIONS (3)
  - Psoriatic arthropathy [Unknown]
  - Enthesopathy [Unknown]
  - Therapeutic product effect decreased [Unknown]

NARRATIVE: CASE EVENT DATE: 20250101
